FAERS Safety Report 5957702-5 (Version None)
Quarter: 2008Q4

REPORT INFORMATION
  Report Type: 
  Country: None (occurrence: None)
  Receive Date: 20081119
  Receipt Date: 20081111
  Transmission Date: 20090506
  Serious: Yes (Disabling, Other)
  Sender: FDA-Public Use
  Company Number: CA-ALLERGAN-0811850US

PATIENT
  Sex: Male
  Weight: 21 kg

DRUGS (3)
  1. BOTOX [Suspect]
     Indication: MUSCLE SPASTICITY
     Dosage: 440 UNITS, SINGLE
     Route: 030
     Dates: start: 20080601, end: 20080601
  2. CARBAMAZEPINE [Concomitant]
     Indication: DRUG USE FOR UNKNOWN INDICATION
     Dosage: 400 MG, QD
  3. MINERAL OIL EMULSION [Concomitant]
     Indication: DRUG USE FOR UNKNOWN INDICATION

REACTIONS (4)
  - DYSPHAGIA [None]
  - FEEDING DISORDER [None]
  - MASTICATION DISORDER [None]
  - MUSCULAR WEAKNESS [None]
